FAERS Safety Report 12885099 (Version 2)
Quarter: 2016Q4

REPORT INFORMATION
  Report Type: Spontaneous
  Country: GB (occurrence: GB)
  Receive Date: 20161026
  Receipt Date: 20161027
  Transmission Date: 20170207
  Serious: Yes (Other)
  Sender: FDA-Public Use
  Company Number: GB-009507513-1610GBR012260

PATIENT
  Age: 32 Year
  Sex: Female

DRUGS (1)
  1. NEXPLANON [Suspect]
     Active Substance: ETONOGESTREL
     Indication: PRODUCT USED FOR UNKNOWN INDICATION
     Dosage: UNK
     Dates: start: 20160609

REACTIONS (6)
  - Device dislocation [Not Recovered/Not Resolved]
  - Implant site pain [Unknown]
  - Complication of device removal [Unknown]
  - Device deployment issue [Unknown]
  - Complication associated with device [Unknown]
  - Implant site nerve injury [Unknown]

NARRATIVE: CASE EVENT DATE: 2016
